FAERS Safety Report 19620994 (Version 3)
Quarter: 2022Q1

REPORT INFORMATION
  Report Type: Report from Study
  Country: DE (occurrence: DE)
  Receive Date: 20210728
  Receipt Date: 20220218
  Transmission Date: 20220423
  Serious: Yes (Other)
  Sender: FDA-Public Use
  Company Number: DE-ABBVIE-21K-062-4005453-00

PATIENT
  Age: 71 Year
  Sex: Female
  Weight: 75 kg

DRUGS (13)
  1. RINVOQ [Suspect]
     Active Substance: UPADACITINIB
     Indication: Rheumatoid arthritis
     Route: 048
     Dates: start: 20210401, end: 20210601
  2. PREDNISOLONE [Concomitant]
     Active Substance: PREDNISOLONE
     Indication: Rheumatoid arthritis
     Route: 048
     Dates: start: 20210324
  3. ACETAMINOPHEN [Concomitant]
     Active Substance: ACETAMINOPHEN
     Indication: Rheumatoid arthritis
     Dosage: AS NEEDED
     Route: 048
  4. RAMIPRIL [Concomitant]
     Active Substance: RAMIPRIL
     Indication: Hypertension
     Route: 048
     Dates: start: 2000
  5. AMLODIPINE BESYLATE [Concomitant]
     Active Substance: AMLODIPINE BESYLATE
     Indication: Hypertension
     Route: 048
     Dates: start: 2000
  6. IODINE [Concomitant]
     Active Substance: IODINE
     Indication: Goitre
     Route: 048
     Dates: start: 2000
  7. XARELTO [Concomitant]
     Active Substance: RIVAROXABAN
     Indication: Factor V Leiden mutation
     Route: 048
     Dates: start: 2018
  8. VITAMIN D3 [Concomitant]
     Active Substance: CHOLECALCIFEROL
     Indication: Prophylaxis
     Route: 048
     Dates: start: 2000
  9. IODINE [Concomitant]
     Active Substance: IODINE
     Indication: Goitre
     Dosage: 200 UG/KG
     Route: 048
     Dates: start: 2000
  10. INFLUENZA VIRUS VACCINE [Concomitant]
     Active Substance: INFLUENZA VIRUS VACCINE
     Indication: Influenza immunisation
     Dates: start: 20211020
  11. UNSPECIFIED INGREDIENT [Concomitant]
     Active Substance: UNSPECIFIED INGREDIENT
     Indication: Severe acute respiratory syndrome
     Dates: start: 20210604, end: 20210604
  12. UNSPECIFIED INGREDIENT [Concomitant]
     Active Substance: UNSPECIFIED INGREDIENT
     Dates: start: 20210715, end: 20210715
  13. UNSPECIFIED INGREDIENT [Concomitant]
     Active Substance: UNSPECIFIED INGREDIENT
     Dates: start: 20220119, end: 20220119

REACTIONS (4)
  - Diffuse large B-cell lymphoma [Not Recovered/Not Resolved]
  - Mucosal disorder [Recovered/Resolved]
  - Abdominal pain lower [Not Recovered/Not Resolved]
  - Listless [Not Recovered/Not Resolved]

NARRATIVE: CASE EVENT DATE: 20210501
